FAERS Safety Report 4471761-0 (Version None)
Quarter: 2004Q4

REPORT INFORMATION
  Report Type: 
  Country: None (occurrence: None)
  Receive Date: 20041006
  Receipt Date: 20040928
  Transmission Date: 20050328
  Serious: Yes (Hospitalization)
  Sender: FDA-Public Use
  Company Number: 2004233292DE

PATIENT
  Age: 13 Year
  Sex: Male

DRUGS (6)
  1. GENOTROPIN [Suspect]
     Indication: RENAL FAILURE CHRONIC
     Dosage: 1.8 MG, QD
     Dates: start: 20021218
  2. CALCITRIOL [Concomitant]
  3. AMLODIPINE BESYLATE [Concomitant]
  4. RAMIPRIL [Concomitant]
  5. EPOGEN [Concomitant]
  6. PROPRANOLOL [Concomitant]

REACTIONS (2)
  - OSTEOCHONDROSIS [None]
  - PYREXIA [None]
